FAERS Safety Report 24838870 (Version 1)
Quarter: 2025Q1

REPORT INFORMATION
  Report Type: Report from Study
  Country: US (occurrence: US)
  Receive Date: 20250114
  Receipt Date: 20250114
  Transmission Date: 20250408
  Serious: Yes (Other)
  Sender: ABBVIE
  Company Number: US-ABBVIE-6080710

PATIENT
  Age: 72 Year
  Sex: Female

DRUGS (1)
  1. VENCLEXTA [Suspect]
     Active Substance: VENETOCLAX
     Indication: Chronic lymphocytic leukaemia
     Route: 048
     Dates: start: 202411

REACTIONS (6)
  - Immunodeficiency [Unknown]
  - Dizziness [Unknown]
  - Fatigue [Unknown]
  - Ear congestion [Unknown]
  - Spinal fracture [Unknown]
  - Rhinorrhoea [Unknown]
